FAERS Safety Report 9801594 (Version 1)
Quarter: 2014Q1

REPORT INFORMATION
  Report Type: Spontaneous
  Country: US (occurrence: US)
  Receive Date: 20140107
  Receipt Date: 20140107
  Transmission Date: 20141002
  Serious: No
  Sender: FDA-Public Use
  Company Number: US-GILEAD-2011-0035052

PATIENT
  Sex: Female

DRUGS (2)
  1. RANEXA [Suspect]
     Indication: ANGINA PECTORIS
     Dates: start: 20101211, end: 20101225
  2. RANEXA [Suspect]
     Dates: start: 20101202, end: 20101210

REACTIONS (5)
  - Hyperhidrosis [Unknown]
  - Palpitations [Unknown]
  - Headache [Recovering/Resolving]
  - Nausea [Unknown]
  - Abdominal pain upper [Unknown]
